FAERS Safety Report 8280957-1 (Version None)
Quarter: 2012Q2

REPORT INFORMATION
  Report Type: 
  Country: None (occurrence: None)
  Receive Date: 20120412
  Receipt Date: 20120402
  Transmission Date: 20120825
  Serious: Yes (Other)
  Sender: FDA-Public Use
  Company Number: DE-BAXTER-2012BH004571

PATIENT
  Age: 55 Year
  Sex: Male

DRUGS (2)
  1. EXTRANEAL [Suspect]
     Route: 033
  2. PHYSIONEAL 40 GLUCOSE 1,36 % W/V 13,6 MG/ML CLEARFLEX PERITONEALDIALYS [Suspect]
     Route: 033

REACTIONS (1)
  - NONINFECTIOUS PERITONITIS [None]
